FAERS Safety Report 6911372-8 (Version None)
Quarter: 2010Q3

REPORT INFORMATION
  Report Type: 
  Country: None (occurrence: None)
  Receive Date: 20100806
  Receipt Date: 20100804
  Transmission Date: 20110219
  Serious: Yes (Other)
  Sender: FDA-Public Use
  Company Number: US-BRISTOL-MYERS SQUIBB COMPANY-15225329

PATIENT
  Sex: Female

DRUGS (2)
  1. ABILIFY [Suspect]
  2. PRISTIQ [Concomitant]

REACTIONS (4)
  - IMMUNE SYSTEM DISORDER [None]
  - MEMORY IMPAIRMENT [None]
  - THYROID DISORDER [None]
  - TREMOR [None]
